FAERS Safety Report 18097041 (Version 3)
Quarter: 2020Q4

REPORT INFORMATION
  Report Type: Spontaneous
  Country: US (occurrence: US)
  Receive Date: 20200731
  Receipt Date: 20201016
  Transmission Date: 20210113
  Serious: No
  Sender: FDA-Public Use
  Company Number: US-GLAXOSMITHKLINE-US2020143401

PATIENT
  Sex: Female

DRUGS (1)
  1. VENTOLIN HFA [Suspect]
     Active Substance: ALBUTEROL SULFATE
     Indication: ASTHMA
     Dosage: UNK AS NEEDED
     Route: 055

REACTIONS (5)
  - Product dose omission issue [Unknown]
  - Anxiety [Unknown]
  - Conversion disorder [Unknown]
  - Product complaint [Unknown]
  - Dyspnoea [Unknown]
